FAERS Safety Report 20618346 (Version 4)
Quarter: 2023Q2

REPORT INFORMATION
  Report Type: Other
  Country: GB (occurrence: None)
  Receive Date: 20220321
  Receipt Date: 20230518
  Transmission Date: 20230722
  Serious: No
  Sender: FDA-Public Use
  Company Number: GB-ROCHE-3052086

PATIENT
  Age: 31 Year
  Sex: Female

DRUGS (2)
  1. OCREVUS [Suspect]
     Active Substance: OCRELIZUMAB
     Indication: Relapsing-remitting multiple sclerosis
     Route: 041
     Dates: start: 20220314
  2. OCREVUS [Suspect]
     Active Substance: OCRELIZUMAB
     Route: 041

REACTIONS (4)
  - Hepatitis B core antibody positive [Unknown]
  - White blood cells urine positive [Unknown]
  - Infusion related reaction [Recovered/Resolved]
  - Oropharyngeal pain [Recovered/Resolved]

NARRATIVE: CASE EVENT DATE: 20220314
